FAERS Safety Report 16486072 (Version 2)
Quarter: 2019Q3

REPORT INFORMATION
  Report Type: Spontaneous
  Country: NL (occurrence: NL)
  Receive Date: 20190627
  Receipt Date: 20190925
  Transmission Date: 20191004
  Serious: Yes (Hospitalization, Other)
  Sender: FDA-Public Use
  Company Number: NL-AMGEN-NLDSP2019101518

PATIENT
  Sex: Female

DRUGS (3)
  1. NEUPOGEN [Suspect]
     Active Substance: FILGRASTIM
     Indication: THALASSAEMIA
  2. NEUPOGEN [Suspect]
     Active Substance: FILGRASTIM
     Indication: SICKLE CELL DISEASE
     Dosage: 1 DOSAGE FORM, (THREE MONTH ON END)
     Route: 065
     Dates: start: 19920101, end: 19920401
  3. NEUPOGEN [Suspect]
     Active Substance: FILGRASTIM
     Indication: LEUKAEMIA

REACTIONS (2)
  - Sepsis [Unknown]
  - Hypovolaemia [Unknown]

NARRATIVE: CASE EVENT DATE: 1992
